FAERS Safety Report 15295187 (Version 2)
Quarter: 2018Q3

REPORT INFORMATION
  Report Type: Spontaneous
  Country: US (occurrence: US)
  Receive Date: 20180820
  Receipt Date: 20180822
  Transmission Date: 20181010
  Serious: No
  Sender: FDA-Public Use
  Company Number: US-PFIZER INC-2018330304

PATIENT
  Age: 73 Year
  Sex: Female
  Weight: 115.2 kg

DRUGS (1)
  1. FLECTOR [Suspect]
     Active Substance: DICLOFENAC EPOLAMINE
     Indication: BACK PAIN
     Dosage: 2 DF, 2X/DAY (1.3% TOPICAL PATCH, APPLIES 2 PATCHES EVERY 12 HOURS)
     Route: 061
     Dates: start: 20180720

REACTIONS (2)
  - Overdose [Unknown]
  - Psoriasis [Recovering/Resolving]

NARRATIVE: CASE EVENT DATE: 20180720
